FAERS Safety Report 8503578-1 (Version None)
Quarter: 2012Q3

REPORT INFORMATION
  Report Type: 
  Country: None (occurrence: None)
  Receive Date: 20120711
  Receipt Date: 20120703
  Transmission Date: 20120928
  Serious: Yes (Life-Threatening, Hospitalization)
  Sender: FDA-Public Use
  Company Number: HU-CELGENEUS-076-21880-12060029

PATIENT
  Sex: Male

DRUGS (18)
  1. REVLIMID [Suspect]
     Indication: MULTIPLE MYELOMA
     Route: 048
  2. CHLOROQUINE [Concomitant]
     Route: 065
     Dates: start: 20111201, end: 20120529
  3. DEXAMETHASONE [Suspect]
     Indication: MULTIPLE MYELOMA
     Route: 065
  4. AZULFIDINE [Concomitant]
     Route: 065
     Dates: start: 20111201
  5. CIPROFLOXACIN [Concomitant]
     Route: 065
     Dates: start: 20120522
  6. VALSARTAN  AND HYDROCHLOROTHIAZIDE [Concomitant]
     Route: 065
     Dates: end: 20120529
  7. FLUCONAZOLE [Concomitant]
     Route: 065
     Dates: start: 20120601
  8. ELOTUZUMAB [Suspect]
     Indication: MULTIPLE MYELOMA
     Route: 065
  9. HIDROXYMORPHON [Concomitant]
     Route: 065
     Dates: end: 20120529
  10. TOLPERISONE [Concomitant]
     Route: 065
     Dates: end: 20120529
  11. ZOLEDRONIC ACID [Concomitant]
     Route: 065
     Dates: start: 20120425
  12. TRAMADOL HCL [Concomitant]
     Route: 065
  13. ENOXAPARIN SODIUM [Concomitant]
     Route: 065
     Dates: start: 20120522
  14. SUPPOSITORIUM ANALGETICUM FORTE [Concomitant]
     Route: 065
     Dates: end: 20120529
  15. PANTOPRAZOLE [Concomitant]
     Route: 065
     Dates: start: 20080718
  16. INDAPAMID [Concomitant]
     Route: 065
     Dates: end: 20120529
  17. ACYCLOVIR [Concomitant]
     Route: 065
     Dates: start: 20120522
  18. FENTANYL [Concomitant]
     Route: 065
     Dates: start: 20120530

REACTIONS (2)
  - TUMOUR LYSIS SYNDROME [None]
  - RENAL FAILURE ACUTE [None]
